FAERS Safety Report 9433803 (Version 1)
Quarter: 2013Q3

REPORT INFORMATION
  Report Type: Report from Study
  Country: US (occurrence: US)
  Receive Date: 20130731
  Receipt Date: 20130731
  Transmission Date: 20140515
  Serious: Yes (Hospitalization)
  Sender: FDA-Public Use
  Company Number: PHEH2013US016047

PATIENT
  Age: 55 Year
  Sex: Female

DRUGS (7)
  1. TASIGNA [Suspect]
     Indication: CHRONIC MYELOID LEUKAEMIA
     Dosage: 300 MG, Q12H
     Route: 048
     Dates: start: 201305
  2. TRAMADOL HCL [Concomitant]
     Dosage: 50 MG, UNK
  3. TIZANIDINE HYDROCHLORIDE [Concomitant]
     Dosage: 4 MG, UNK
  4. DOXEPIN [Concomitant]
     Dosage: 50 MG, UNK
  5. HYDROCHLOROTHIAZIDE [Concomitant]
     Dosage: 12.5 MG, UNK
  6. ZOLPIDEM TARTRATE [Concomitant]
     Dosage: 12.5 MG, UNK
  7. MULTI-VIT [Concomitant]

REACTIONS (6)
  - Intestinal mass [Unknown]
  - Pneumonia [Unknown]
  - Sepsis [Unknown]
  - Chromaturia [Unknown]
  - White blood cell count increased [Unknown]
  - Red blood cell count decreased [Unknown]
